FAERS Safety Report 24277568 (Version 4)
Quarter: 2024Q4

REPORT INFORMATION
  Report Type: Report from Study
  Country: US (occurrence: US)
  Receive Date: 20240903
  Receipt Date: 20241030
  Transmission Date: 20250115
  Serious: Yes (Other)
  Sender: TAKEDA
  Company Number: US-TAKEDA-2023TUS004772

PATIENT
  Sex: Female
  Weight: 86 kg

DRUGS (5)
  1. VEDOLIZUMAB [Suspect]
     Active Substance: VEDOLIZUMAB
     Indication: Colitis ulcerative
     Dosage: 300 MILLIGRAM
     Route: 042
     Dates: start: 2021
  2. VEDOLIZUMAB [Suspect]
     Active Substance: VEDOLIZUMAB
     Indication: Fistula
  3. HYDROCHLOROTHIAZIDE [Concomitant]
     Active Substance: HYDROCHLOROTHIAZIDE
     Dosage: UNK
  4. LISINOPRIL [Concomitant]
     Active Substance: LISINOPRIL
     Dosage: UNK
  5. MESALAMINE [Concomitant]
     Active Substance: MESALAMINE
     Dosage: UNK

REACTIONS (15)
  - Colitis ulcerative [Unknown]
  - Dry skin [Not Recovered/Not Resolved]
  - Rash pruritic [Not Recovered/Not Resolved]
  - Pruritus [Not Recovered/Not Resolved]
  - Gait disturbance [Unknown]
  - Nervous system disorder [Unknown]
  - Inappropriate schedule of product administration [Unknown]
  - Frequent bowel movements [Not Recovered/Not Resolved]
  - Visual impairment [Unknown]
  - Diarrhoea [Unknown]
  - Urinary incontinence [Not Recovered/Not Resolved]
  - Body height decreased [Unknown]
  - Burning sensation [Not Recovered/Not Resolved]
  - Ear infection [Unknown]
  - Fatigue [Unknown]
